FAERS Safety Report 5124935-X (Version None)
Quarter: 2006Q4

REPORT INFORMATION
  Report Type: 
  Country: None (occurrence: None)
  Receive Date: 20061006
  Receipt Date: 20060922
  Transmission Date: 20070319
  Serious: Yes (Hospitalization, Other)
  Sender: FDA-Public Use
  Company Number: 2006SP002871

PATIENT
  Sex: Male

DRUGS (1)
  1. NASONEX [Suspect]
     Indication: NASAL POLYPS
     Dosage: NAS
     Route: 045

REACTIONS (2)
  - CONDITION AGGRAVATED [None]
  - DIVERTICULITIS [None]
